FAERS Safety Report 19772774 (Version 10)
Quarter: 2023Q4

REPORT INFORMATION
  Report Type: Spontaneous
  Country: DE (occurrence: DE)
  Receive Date: 20210831
  Receipt Date: 20231026
  Transmission Date: 20240109
  Serious: Yes (Life-Threatening, Hospitalization, Other)
  Sender: FDA-Public Use
  Company Number: DE-AMGEN-DEUSP2020214281

PATIENT
  Age: 49 Year
  Sex: Female
  Weight: 100 kg

DRUGS (79)
  1. NEULASTA [Suspect]
     Active Substance: PEGFILGRASTIM
     Indication: Neutropenia
     Dosage: UNK
     Route: 058
     Dates: start: 20151212, end: 20151212
  2. BLEOMYCIN [Suspect]
     Active Substance: BLEOMYCIN SULFATE
     Indication: Hodgkin^s disease
     Dosage: 25 MILLIGRAM/SQ. METER (DAY 1 AND DAY 15)
     Route: 065
     Dates: start: 20151027, end: 201512
  3. BLEOMYCIN [Suspect]
     Active Substance: BLEOMYCIN SULFATE
     Dosage: 10 MG/M2, DAY 8
     Route: 065
     Dates: start: 20160120
  4. VALSARTAN [Suspect]
     Active Substance: VALSARTAN
     Indication: Hypertension
     Dosage: UNK
     Route: 065
     Dates: start: 201410
  5. VALSARTAN [Suspect]
     Active Substance: VALSARTAN
     Dosage: UNK
     Route: 065
     Dates: start: 20140707
  6. VALSARTAN [Suspect]
     Active Substance: VALSARTAN
     Dosage: 160/ 12.5 MG
     Route: 065
     Dates: start: 201410
  7. VALSARTAN [Suspect]
     Active Substance: VALSARTAN
     Dosage: UNK
     Route: 065
     Dates: start: 20150102
  8. VALSARTAN [Suspect]
     Active Substance: VALSARTAN
     Dosage: UNK
     Route: 065
     Dates: start: 20141014
  9. VALSARTAN [Suspect]
     Active Substance: VALSARTAN
     Dosage: UNK
     Route: 065
     Dates: start: 20140707
  10. VALSARTAN [Suspect]
     Active Substance: VALSARTAN
     Dosage: 80 MG, QD
     Route: 065
     Dates: start: 201407
  11. VALSARTAN [Suspect]
     Active Substance: VALSARTAN
     Dosage: UNK, QD
     Route: 065
     Dates: start: 201407
  12. VALSARTAN [Suspect]
     Active Substance: VALSARTAN
     Dosage: UNK
     Route: 065
     Dates: start: 20150611
  13. VALSARTAN [Suspect]
     Active Substance: VALSARTAN
     Dosage: 80 MG
     Route: 065
     Dates: start: 201407
  14. VALSARTAN [Suspect]
     Active Substance: VALSARTAN
     Dosage: UNK
     Route: 065
     Dates: start: 20160427
  15. VALSARTAN [Suspect]
     Active Substance: VALSARTAN
     Dosage: 80 MG
     Route: 065
     Dates: start: 201407
  16. VALSARTAN [Suspect]
     Active Substance: VALSARTAN
     Dosage: UNK
     Route: 065
     Dates: start: 20150415
  17. PREDNISOLONE [Suspect]
     Active Substance: PREDNISOLONE
     Indication: Hodgkin^s disease
     Dosage: 40 MILLIGRAM/SQ. METER (40 MG MG/M2 (80 MG), DAY 1 - 14, DAILY)
     Route: 065
     Dates: start: 20160113, end: 20160126
  18. IBUPROFEN [Suspect]
     Active Substance: IBUPROFEN
     Indication: Product used for unknown indication
     Dosage: UNK
     Route: 065
  19. DICLOFENAC [Suspect]
     Active Substance: DICLOFENAC
     Indication: Product used for unknown indication
     Dosage: UNK
     Route: 065
  20. BACLOFEN [Suspect]
     Active Substance: BACLOFEN
     Indication: Product used for unknown indication
     Dosage: 200 MICROGRAM VIA PUMP
     Route: 058
     Dates: start: 2015
  21. BACLOFEN [Suspect]
     Active Substance: BACLOFEN
     Dosage: 200 MICROGRAM/20 MG VIA PUMP (1-1-1)
     Route: 058
  22. PIRITRAMIDE [Suspect]
     Active Substance: PIRITRAMIDE
     Indication: Back pain
     Dosage: 15 MILLIGRAM
     Route: 065
     Dates: start: 20150608
  23. PIRITRAMIDE [Suspect]
     Active Substance: PIRITRAMIDE
     Indication: Pain in extremity
  24. CYCLOPHOSPHAMIDE [Suspect]
     Active Substance: CYCLOPHOSPHAMIDE
     Indication: Hodgkin^s disease
     Dosage: 750 MILLIGRAM/SQ. METER
     Route: 065
     Dates: start: 20160113
  25. HYDROCHLOROTHIAZIDE\VALSARTAN [Suspect]
     Active Substance: HYDROCHLOROTHIAZIDE\VALSARTAN
     Indication: Hypertension
     Dosage: UNK
     Route: 065
     Dates: start: 201407, end: 201407
  26. HYDROCHLOROTHIAZIDE\VALSARTAN [Suspect]
     Active Substance: HYDROCHLOROTHIAZIDE\VALSARTAN
     Dosage: UNK
     Route: 065
     Dates: start: 20141014
  27. HYDROCHLOROTHIAZIDE\VALSARTAN [Suspect]
     Active Substance: HYDROCHLOROTHIAZIDE\VALSARTAN
     Dosage: 1 DOSAGE FORM, QD ((IN MORNING, 1-0-0))
     Route: 065
     Dates: start: 201410, end: 201704
  28. HYDROCHLOROTHIAZIDE\VALSARTAN [Suspect]
     Active Substance: HYDROCHLOROTHIAZIDE\VALSARTAN
     Dosage: UNK
     Route: 065
     Dates: start: 20150102
  29. HYDROCHLOROTHIAZIDE\VALSARTAN [Suspect]
     Active Substance: HYDROCHLOROTHIAZIDE\VALSARTAN
     Dosage: UNK
     Route: 065
     Dates: start: 20150122
  30. HYDROCHLOROTHIAZIDE\VALSARTAN [Suspect]
     Active Substance: HYDROCHLOROTHIAZIDE\VALSARTAN
     Dosage: UNK
     Route: 065
     Dates: start: 20150415
  31. HYDROCHLOROTHIAZIDE\VALSARTAN [Suspect]
     Active Substance: HYDROCHLOROTHIAZIDE\VALSARTAN
     Dosage: UNK
     Route: 065
     Dates: start: 20150611
  32. HYDROCHLOROTHIAZIDE\VALSARTAN [Suspect]
     Active Substance: HYDROCHLOROTHIAZIDE\VALSARTAN
     Dosage: UNK
     Route: 065
     Dates: start: 20160427
  33. HYDROCHLOROTHIAZIDE\VALSARTAN [Suspect]
     Active Substance: HYDROCHLOROTHIAZIDE\VALSARTAN
     Dosage: UNK
     Route: 065
     Dates: start: 20160804
  34. HYDROCHLOROTHIAZIDE\VALSARTAN [Suspect]
     Active Substance: HYDROCHLOROTHIAZIDE\VALSARTAN
     Dosage: UNK
     Route: 065
     Dates: start: 201407, end: 201407
  35. HYDROCHLOROTHIAZIDE\VALSARTAN [Suspect]
     Active Substance: HYDROCHLOROTHIAZIDE\VALSARTAN
     Dosage: UNK
     Route: 065
     Dates: start: 201407, end: 201407
  36. DOXORUBICIN [Suspect]
     Active Substance: DOXORUBICIN
     Indication: Hodgkin^s disease
     Dosage: 25 MILLIGRAM/SQ. METER (DAY 1 AND DAY 15)
     Route: 065
     Dates: start: 20151027, end: 201512
  37. DOXORUBICIN [Suspect]
     Active Substance: DOXORUBICIN
     Dosage: 25 MILLIGRAM/SQ. METER (DAY 1)
     Route: 065
     Dates: start: 20160113
  38. PROCARBAZINE [Suspect]
     Active Substance: PROCARBAZINE
     Indication: Hodgkin^s disease
     Dosage: 100 MILLIGRAM/SQ. METER, BID (DAY 1-7, DAILY)
     Route: 065
     Dates: start: 20190113, end: 20190119
  39. ASPIRIN [Suspect]
     Active Substance: ASPIRIN
     Indication: Product used for unknown indication
     Dosage: UNK
     Route: 065
  40. DACARBAZINE [Suspect]
     Active Substance: DACARBAZINE
     Indication: Hodgkin^s disease
     Dosage: 375 MILLIGRAM/SQ. METER (DAY 1 AND DAY 15)
     Route: 065
     Dates: start: 20151027, end: 201512
  41. VINBLASTINE [Suspect]
     Active Substance: VINBLASTINE
     Indication: Hodgkin^s disease
     Dosage: 6 MG/M2, (DAY 1 AND DAY 15)
     Route: 065
     Dates: start: 20151027, end: 201512
  42. VINCRISTINE [Suspect]
     Active Substance: VINCRISTINE
     Indication: Hodgkin^s disease
     Dosage: 2 MILLIGRAM (ABSOLUTE, DAY 8)
     Route: 065
     Dates: start: 20160120
  43. ETOPOSIDE [Suspect]
     Active Substance: ETOPOSIDE
     Indication: Hodgkin^s disease
     Dosage: 100 MILLIGRAM/SQ. METER (DAY 1-3)
     Route: 065
     Dates: start: 20160113
  44. LENOGRASTIM [Suspect]
     Active Substance: LENOGRASTIM
     Indication: Neutropenia
     Dosage: 34 UNK, QD (1X 34, QD, 1X DAILY)
     Route: 065
     Dates: start: 20160120, end: 201601
  45. LENOGRASTIM [Suspect]
     Active Substance: LENOGRASTIM
     Indication: Prophylaxis
     Dosage: 34 UNK, QD (1X 34, QD, 1X DAILY)
     Route: 065
     Dates: start: 20160203, end: 20160205
  46. ACETAMINOPHEN [Suspect]
     Active Substance: ACETAMINOPHEN
     Indication: Product used for unknown indication
     Dosage: UNK
     Route: 065
  47. HYDROCHLOROTHIAZIDE\VALSARTAN [Suspect]
     Active Substance: HYDROCHLOROTHIAZIDE\VALSARTAN
     Indication: Hypertension
     Dosage: UNK
     Route: 065
     Dates: start: 20170411
  48. HYDROCHLOROTHIAZIDE\VALSARTAN [Suspect]
     Active Substance: HYDROCHLOROTHIAZIDE\VALSARTAN
     Dosage: 160 MG / 12.5 MG
     Route: 065
     Dates: start: 201704, end: 2017
  49. HYDROCHLOROTHIAZIDE\VALSARTAN [Suspect]
     Active Substance: HYDROCHLOROTHIAZIDE\VALSARTAN
     Dosage: UNK
     Route: 065
     Dates: start: 20170725
  50. DIAZEPAM [Concomitant]
     Active Substance: DIAZEPAM
     Indication: Pain in extremity
     Dosage: 2.5 UNK, QD (1X 2.5, QD, 1X DAILY (EVENING))
     Route: 065
  51. DIAZEPAM [Concomitant]
     Active Substance: DIAZEPAM
     Indication: Back pain
     Dosage: 2.5 UNK, QD (1X 2.5, QD, 1X DAILY (MORNING))
     Route: 065
  52. LYRICA [Concomitant]
     Active Substance: PREGABALIN
     Indication: Product used for unknown indication
     Dosage: 150 UNK, QD (2X 75, 1X DAILY (MORNING))
     Route: 065
     Dates: start: 2016
  53. LYRICA [Concomitant]
     Active Substance: PREGABALIN
     Dosage: 150 UNK, BID (MORNING AND EVENING))
     Route: 065
     Dates: start: 2016
  54. LYRICA [Concomitant]
     Active Substance: PREGABALIN
     Dosage: 75 UNK, QD (1X 75, 1X DAILY (EVENING))
     Route: 065
     Dates: start: 2016
  55. LYRICA [Concomitant]
     Active Substance: PREGABALIN
     Dosage: 150 UNK, QD (1X 150, 1X)
     Route: 065
     Dates: start: 2016
  56. LYRICA [Concomitant]
     Active Substance: PREGABALIN
     Dosage: 150 UNK, BID (MORNING AND EVENING))
     Route: 065
  57. MOTILIUM [Concomitant]
     Active Substance: DOMPERIDONE
     Indication: Product used for unknown indication
     Dosage: 1 DOSAGE FORM, QID (1 DF,SACHET, 4X DAILY)
     Route: 065
  58. MORPHINE [Concomitant]
     Active Substance: MORPHINE
     Indication: Pain
     Dosage: UNK VIA PUMP
     Route: 065
  59. SULFAMETHOXAZOLE\TRIMETHOPRIM [Concomitant]
     Active Substance: SULFAMETHOXAZOLE\TRIMETHOPRIM
     Indication: Prophylaxis
     Dosage: 1 DOSAGE FORM, BID (ON (SATURDAY AND SUNDAY))
     Route: 065
  60. SULFAMETHOXAZOLE\TRIMETHOPRIM [Concomitant]
     Active Substance: SULFAMETHOXAZOLE\TRIMETHOPRIM
     Indication: Pneumonia
  61. CLORAZEPATE DIPOTASSIUM [Concomitant]
     Active Substance: CLORAZEPATE DIPOTASSIUM
     Indication: Product used for unknown indication
     Dosage: 10 MG, BID (1X 10 MG, BID, 2X DAILY (MORNING AND EVENING))
     Route: 065
  62. CLORAZEPATE DIPOTASSIUM [Concomitant]
     Active Substance: CLORAZEPATE DIPOTASSIUM
     Dosage: 10 MG, QD (1X 10 MG, QD, 1X DAILY (MORNING))
     Route: 065
  63. VALSARTAN [Concomitant]
     Active Substance: VALSARTAN
     Indication: Hypertension
     Dosage: UNK
     Route: 016
     Dates: start: 20130124
  64. VALSARTAN [Concomitant]
     Active Substance: VALSARTAN
     Dosage: UNK
     Route: 016
  65. VALSARTAN [Concomitant]
     Active Substance: VALSARTAN
     Dosage: UNK UNK, QD (ONCE IN THE MORNING)
     Route: 016
  66. PANTOZOL [Concomitant]
     Active Substance: PANTOPRAZOLE SODIUM
     Indication: Product used for unknown indication
     Dosage: 40 UNK, QD (1X 40, 1X DAILY (MORNING))
     Route: 016
  67. PANTOZOL [Concomitant]
     Active Substance: PANTOPRAZOLE SODIUM
     Dosage: 40 UNK, QD (1X 40, 1X DAILY (EVENING))
     Route: 016
  68. PANTOZOL [Concomitant]
     Active Substance: PANTOPRAZOLE SODIUM
     Dosage: 40 MILLIGRAM, QD
     Route: 016
  69. CITALOPRAM [Concomitant]
     Active Substance: CITALOPRAM HYDROBROMIDE
     Indication: Product used for unknown indication
     Dosage: 20 UNK, QD (1X 20, 1X DAILY (MORNING))
     Route: 065
  70. HYDROMORPHONE [Concomitant]
     Active Substance: HYDROMORPHONE
     Indication: Product used for unknown indication
     Dosage: 8 MILLIGRAM, BID
     Route: 065
     Dates: start: 201511
  71. CLONIDINE [Concomitant]
     Active Substance: CLONIDINE
     Indication: Hypertension
     Dosage: 0.15 MICROGRAM, BID (1-0-1 IN MORNINGA AND EVENING))
     Route: 016
  72. CLONIDINE [Concomitant]
     Active Substance: CLONIDINE
     Dosage: 0.15 UG, BID (ONCE IN THE MORNING, ONCE IN ETHE VENING (1-0-1))
     Route: 016
  73. CLONIDINE [Concomitant]
     Active Substance: CLONIDINE
     Dosage: 50 MG, BID (ONCE IN THE MORNING, ONCE IN THE EVENING 50 MG, BID (ONCE IN THE MORNING, ONCE IN THE EV
     Route: 016
  74. ENOXAPARIN SODIUM [Concomitant]
     Active Substance: ENOXAPARIN SODIUM
     Indication: Prophylaxis
     Dosage: 40 MILLIGRAM, QD
     Route: 058
  75. CHOLECALCIFEROL [Concomitant]
     Active Substance: CHOLECALCIFEROL
     Indication: Product used for unknown indication
     Dosage: 100 MILLIGRAM, QD (IN THE MORNING)
     Route: 048
  76. LEVOTHYROXINE [Concomitant]
     Active Substance: LEVOTHYROXINE
     Indication: Product used for unknown indication
     Dosage: UNK
     Route: 065
  77. SULFAMETHOXAZOLE\TRIMETHOPRIM [Concomitant]
     Active Substance: SULFAMETHOXAZOLE\TRIMETHOPRIM
     Indication: Pneumonia
     Dosage: 1 DOSAGE FORM, BID (ON (SATURDAY AND SUNDAY)
     Route: 065
  78. DOMPERIDONE [Concomitant]
     Active Substance: DOMPERIDONE
     Dosage: 10 MILLIGRAM, TID
     Route: 065
  79. MOVICOL [Concomitant]
     Active Substance: POLYETHYLENE GLYCOL 3350\POTASSIUM CHLORIDE\SODIUM BICARBONATE\SODIUM CHLORIDE
     Indication: Product used for unknown indication
     Dosage: 1 DF SACHET, 1X IF NEEDED
     Route: 065

REACTIONS (79)
  - Viral infection [Recovered/Resolved]
  - Drug abuse [Unknown]
  - Klebsiella infection [Unknown]
  - Vomiting [Recovering/Resolving]
  - Pulmonary congestion [Unknown]
  - Dysphagia [Unknown]
  - Hypothyroidism [Unknown]
  - Candida infection [Unknown]
  - Tissue infiltration [Unknown]
  - Basal ganglion degeneration [Unknown]
  - Spinal cord disorder [Unknown]
  - Sepsis [Unknown]
  - Headache [Unknown]
  - Pyrexia [Recovered/Resolved]
  - Nausea [Recovering/Resolving]
  - Bone pain [Unknown]
  - Neurological decompensation [Recovering/Resolving]
  - Fall [Recovered/Resolved]
  - Loss of consciousness [Unknown]
  - Haematoma [Unknown]
  - Psychogenic seizure [Unknown]
  - Fatigue [Unknown]
  - Speech disorder [Recovering/Resolving]
  - Uterine enlargement [Unknown]
  - Monoplegia [Unknown]
  - Abdominal tenderness [Unknown]
  - Tremor [Unknown]
  - Fall [Recovered/Resolved]
  - Splenomegaly [Unknown]
  - Hypothyroidism [Unknown]
  - Pneumonia [Unknown]
  - Dyspnoea [Recovering/Resolving]
  - Spinal pain [Unknown]
  - Neutropenia [Recovering/Resolving]
  - Cough [Unknown]
  - Lymphadenopathy [Recovering/Resolving]
  - Pyrexia [Recovered/Resolved]
  - Urinary tract infection [Unknown]
  - Back pain [Recovering/Resolving]
  - Pain in extremity [Recovering/Resolving]
  - General physical health deterioration [Unknown]
  - Hodgkin^s disease [Unknown]
  - Red blood cell sedimentation rate increased [Unknown]
  - Pain [Recovering/Resolving]
  - Hyperpyrexia [Unknown]
  - Uterine enlargement [Unknown]
  - Neoplasm malignant [Unknown]
  - Respiratory failure [Unknown]
  - Respiratory failure [Unknown]
  - Anaphylactic reaction [Unknown]
  - Hypochromic anaemia [Unknown]
  - Emotional distress [Unknown]
  - Fear [Unknown]
  - Anaesthesia [Recovering/Resolving]
  - Hypoaesthesia [Recovering/Resolving]
  - Hypoaesthesia [Recovering/Resolving]
  - Hypokinesia [Not Recovered/Not Resolved]
  - Hepatic steatosis [Unknown]
  - Product use in unapproved indication [Unknown]
  - Hyperventilation [Unknown]
  - Psychogenic seizure [Unknown]
  - Inflammation [Recovering/Resolving]
  - Sleep disorder [Unknown]
  - Lung disorder [Unknown]
  - Obesity [Unknown]
  - Inguinal hernia [Unknown]
  - Dysaesthesia [Recovering/Resolving]
  - Sleep apnoea syndrome [Unknown]
  - Tachycardia [Unknown]
  - Renal cyst [Unknown]
  - Somnolence [Recovering/Resolving]
  - Muscle spasticity [Unknown]
  - Off label use [Unknown]
  - Intervertebral disc disorder [Unknown]
  - Hyperhidrosis [Unknown]
  - Dizziness [Recovering/Resolving]
  - Arthralgia [Unknown]
  - Myalgia [Unknown]
  - Drug hypersensitivity [Unknown]

NARRATIVE: CASE EVENT DATE: 20151201
